FAERS Safety Report 18062221 (Version 1)
Quarter: 2020Q3

REPORT INFORMATION
  Report Type: Spontaneous
  Country: US (occurrence: US)
  Receive Date: 20200723
  Receipt Date: 20200723
  Transmission Date: 20201103
  Serious: Yes (Congenital Anomaly, Other)
  Sender: FDA-Public Use
  Company Number: US-PURDUE-USA-2020-0159041

PATIENT
  Age: 5 Year

DRUGS (1)
  1. OXYCONTIN [Suspect]
     Active Substance: OXYCODONE HYDROCHLORIDE
     Indication: PRODUCT USED FOR UNKNOWN INDICATION
     Dosage: UNKNOWN
     Route: 064

REACTIONS (6)
  - Drug withdrawal syndrome neonatal [Unknown]
  - Learning disability [Unknown]
  - Speech disorder developmental [Unknown]
  - Gastrointestinal disorder congenital [Unknown]
  - Developmental delay [Unknown]
  - Foetal exposure during pregnancy [Recovered/Resolved]
